FAERS Safety Report 23551269 (Version 1)
Quarter: 2024Q1

REPORT INFORMATION
  Report Type: Spontaneous
  Country: US (occurrence: US)
  Receive Date: 20240222
  Receipt Date: 20240222
  Transmission Date: 20240409
  Serious: No
  Sender: FDA-Public Use
  Company Number: US-TEVA-VS-3142080

PATIENT
  Age: 67 Year
  Sex: Female

DRUGS (1)
  1. AJOVY [Suspect]
     Active Substance: FREMANEZUMAB-VFRM
     Indication: Migraine
     Dosage: 225/1.5 MG/ML
     Route: 058
     Dates: start: 20230217

REACTIONS (4)
  - Injection site reaction [Unknown]
  - Road traffic accident [Unknown]
  - Vitreous floaters [Unknown]
  - Eye discharge [Unknown]

NARRATIVE: CASE EVENT DATE: 20230928
